FAERS Safety Report 6921435-9 (Version None)
Quarter: 2010Q3

REPORT INFORMATION
  Report Type: 
  Country: None (occurrence: None)
  Receive Date: 20100812
  Receipt Date: 20090731
  Transmission Date: 20110219
  Serious: No
  Sender: FDA-Public Use
  Company Number: A0799864A

PATIENT
  Age: 14 Year
  Sex: Female

DRUGS (2)
  1. TAGAMET HB 200 [Suspect]
     Route: 048
     Dates: start: 20090729, end: 20090730
  2. BENADRYL [Concomitant]

REACTIONS (1)
  - CHEST PAIN [None]
